FAERS Safety Report 8409579-6 (Version None)
Quarter: 2012Q2

REPORT INFORMATION
  Report Type: 
  Country: None (occurrence: None)
  Receive Date: 20120531
  Receipt Date: 20120531
  Transmission Date: 20120825
  Serious: No
  Sender: FDA-Public Use
  Company Number: None

PATIENT
  Age: 64 Year
  Sex: Male
  Weight: 77 kg

DRUGS (1)
  1. PIPERACILLIN/TAZOBACTAM [Suspect]
     Indication: ANIMAL BITE
     Dosage: 3.375 GM ONCE IV
     Route: 042
     Dates: start: 20120519, end: 20120519

REACTIONS (1)
  - RASH [None]
